FAERS Safety Report 15406369 (Version 1)
Quarter: 2018Q3

REPORT INFORMATION
  Report Type: Spontaneous
  Country: US (occurrence: US)
  Receive Date: 20180920
  Receipt Date: 20180920
  Transmission Date: 20181010
  Serious: No
  Sender: FDA-Public Use
  Company Number: US-ELI_LILLY_AND_COMPANY-US201809004561

PATIENT
  Age: 72 Year
  Sex: Female

DRUGS (3)
  1. HUMULIN R U?500 [Suspect]
     Active Substance: INSULIN HUMAN
     Indication: TYPE 2 DIABETES MELLITUS
     Dosage: UNK, PRN
     Route: 058
  2. METFORMIN [Concomitant]
     Active Substance: METFORMIN HYDROCHLORIDE
     Indication: TYPE 2 DIABETES MELLITUS
     Dosage: 1 DF, DAILY
  3. HUMULIN R U?500 [Suspect]
     Active Substance: INSULIN HUMAN
     Dosage: UNK, PRN
     Route: 058

REACTIONS (4)
  - Injury associated with device [Recovered/Resolved]
  - Blood glucose increased [Unknown]
  - Injury corneal [Unknown]
  - Visual impairment [Not Recovered/Not Resolved]

NARRATIVE: CASE EVENT DATE: 20180906
